FAERS Safety Report 18969587 (Version 7)
Quarter: 2023Q2

REPORT INFORMATION
  Report Type: Spontaneous
  Country: US (occurrence: US)
  Receive Date: 20210304
  Receipt Date: 20230425
  Transmission Date: 20230722
  Serious: No
  Sender: FDA-Public Use
  Company Number: US-PFIZER INC-2020361786

PATIENT
  Age: 74 Year
  Sex: Female
  Weight: 112.49 kg

DRUGS (2)
  1. PREMARIN [Suspect]
     Active Substance: ESTROGENS, CONJUGATED
     Indication: Hormone replacement therapy
     Dosage: 1.25 MG, 1X/DAY
  2. PREMARIN [Suspect]
     Active Substance: ESTROGENS, CONJUGATED
     Dosage: ALTERNATE 1.25 MG WITH 0.9MG

REACTIONS (7)
  - Headache [Not Recovered/Not Resolved]
  - Paraesthesia [Unknown]
  - Migraine [Not Recovered/Not Resolved]
  - Speech disorder [Unknown]
  - Product prescribing error [Unknown]
  - Wrong strength [Unknown]
  - Off label use [Unknown]
